FAERS Safety Report 12081755 (Version 1)
Quarter: 2016Q1

REPORT INFORMATION
  Report Type: Spontaneous
  Country: US (occurrence: US)
  Receive Date: 20160216
  Receipt Date: 20160216
  Transmission Date: 20160526
  Serious: Yes (Other)
  Sender: FDA-Public Use
  Company Number: US-BAYER-2016-028145

PATIENT
  Age: 46 Year
  Sex: Male
  Weight: 136.5 kg

DRUGS (1)
  1. AFRIN ORIGINAL [Suspect]
     Active Substance: OXYMETAZOLINE HYDROCHLORIDE
     Indication: NASAL CONGESTION
     Dosage: 1 DF, PRN
     Route: 055

REACTIONS (3)
  - Product use issue [None]
  - Drug dependence [None]
  - Wrong technique in product usage process [None]

NARRATIVE: CASE EVENT DATE: 2004
